FAERS Safety Report 23523588 (Version 1)
Quarter: 2024Q1

REPORT INFORMATION
  Report Type: Spontaneous
  Country: CN (occurrence: CN)
  Receive Date: 20240214
  Receipt Date: 20240214
  Transmission Date: 20240409
  Serious: Yes (Hospitalization)
  Sender: FDA-Public Use
  Company Number: CN-PFIZER INC-PV202400019309

PATIENT
  Age: 57 Year
  Sex: Female
  Weight: 54 kg

DRUGS (1)
  1. CYTARABINE [Suspect]
     Active Substance: CYTARABINE
     Indication: Acute leukaemia
     Dosage: 0.1 G, 2X/DAY
     Route: 041
     Dates: start: 20240101, end: 20240107

REACTIONS (11)
  - Fungal infection [Recovering/Resolving]
  - Pyrexia [Recovering/Resolving]
  - Temperature intolerance [Unknown]
  - Productive cough [Recovering/Resolving]
  - Abdominal pain [Unknown]
  - Musculoskeletal chest pain [Unknown]
  - Faeces discoloured [Unknown]
  - Diarrhoea [Unknown]
  - Bacterial infection [Recovering/Resolving]
  - Myelosuppression [Recovering/Resolving]
  - Hyperhidrosis [Unknown]

NARRATIVE: CASE EVENT DATE: 20240108
